FAERS Safety Report 19647990 (Version 1)
Quarter: 2021Q3

REPORT INFORMATION
  Report Type: Report from Study
  Country: None (occurrence: CA)
  Receive Date: 20210803
  Receipt Date: 20210803
  Transmission Date: 20211014
  Serious: Yes (Hospitalization)
  Sender: FDA-Public Use
  Company Number: CA-ABBVIE-21K-028-4016727-00

PATIENT
  Age: 38 Year
  Sex: Female

DRUGS (1)
  1. HUMIRA [Suspect]
     Active Substance: ADALIMUMAB
     Indication: ANKYLOSING SPONDYLITIS
     Route: 058
     Dates: start: 20180228

REACTIONS (4)
  - Brain injury [Not Recovered/Not Resolved]
  - Road traffic accident [Recovered/Resolved]
  - Limb injury [Unknown]
  - Spinal column injury [Unknown]

NARRATIVE: CASE EVENT DATE: 202105
